FAERS Safety Report 19368662 (Version 4)
Quarter: 2021Q3

REPORT INFORMATION
  Report Type: Report from Study
  Country: US (occurrence: US)
  Receive Date: 20210602
  Receipt Date: 20210914
  Transmission Date: 20211014
  Serious: Yes (Hospitalization)
  Sender: FDA-Public Use
  Company Number: US-SA-2021SA178782

PATIENT
  Age: 53 Year
  Sex: Female
  Weight: 88.9 kg

DRUGS (29)
  1. CARFILZOMIB [Suspect]
     Active Substance: CARFILZOMIB
     Dosage: 40 MG, QOW
     Route: 065
     Dates: start: 20210323, end: 20210323
  2. ARIPIPRAZOLE. [Concomitant]
     Active Substance: ARIPIPRAZOLE
     Indication: DEPRESSION
     Dosage: UNK
     Route: 065
     Dates: start: 20151020
  3. FOLIC ACID. [Concomitant]
     Active Substance: FOLIC ACID
     Indication: ANAEMIA
     Dosage: UNK
     Route: 065
     Dates: start: 2014
  4. STOOL SOFTENER (DOCUSATE) [Concomitant]
     Active Substance: DOCUSATE
     Indication: CONSTIPATION
     Dosage: UNK
     Route: 065
     Dates: start: 2018
  5. KEPPRA [Concomitant]
     Active Substance: LEVETIRACETAM
     Dosage: UNK
     Route: 065
     Dates: start: 20210326
  6. ZOLEDRONIC ACID. [Concomitant]
     Active Substance: ZOLEDRONIC ACID
     Dosage: UNK
     Route: 065
     Dates: start: 20210423
  7. MEDROXIPROGESTERONE [Concomitant]
     Active Substance: MEDROXYPROGESTERONE
     Indication: HORMONE LEVEL ABNORMAL
     Dosage: UNK
     Route: 065
     Dates: start: 2010
  8. ACETAMINOPHEN. [Concomitant]
     Active Substance: ACETAMINOPHEN
     Dosage: UNK UNK, QCY
     Route: 065
     Dates: start: 20210323
  9. DEXAMETHASONE. [Suspect]
     Active Substance: DEXAMETHASONE
     Dosage: 40 MG, QOW
     Route: 065
     Dates: start: 20210323, end: 20210323
  10. FAMOTIDINE. [Suspect]
     Active Substance: FAMOTIDINE
     Dosage: UNK
     Route: 065
     Dates: start: 20210518
  11. CARFILZOMIB [Suspect]
     Active Substance: CARFILZOMIB
     Indication: PLASMA CELL MYELOMA
     Dosage: 40 MG, QOW,
     Route: 065
     Dates: start: 20210518, end: 20210518
  12. ATORVASTATIN CALCIUM. [Concomitant]
     Active Substance: ATORVASTATIN CALCIUM
     Indication: HYPERLIPIDAEMIA
     Dosage: UNK
     Route: 065
     Dates: start: 2012
  13. FEROSUL [Concomitant]
     Active Substance: FERROUS SULFATE
     Indication: ANAEMIA
     Dosage: UNK
     Route: 065
     Dates: start: 2014
  14. CONTRAVE [Concomitant]
     Active Substance: BUPROPION HYDROCHLORIDE\NALTREXONE HYDROCHLORIDE
     Indication: OBESITY
     Dosage: UNK
     Route: 065
     Dates: start: 2006
  15. ESTRADIOL. [Concomitant]
     Active Substance: ESTRADIOL
     Indication: HORMONE LEVEL ABNORMAL
     Dosage: UNK
     Route: 065
     Dates: start: 2010
  16. LACTULOSA [Concomitant]
     Active Substance: LACTULOSE
     Indication: CONSTIPATION
     Dosage: UNK
     Route: 065
     Dates: start: 2010
  17. POTASSIUM GLUCONATE [Concomitant]
     Active Substance: POTASSIUM GLUCONATE
     Indication: HYPOKALAEMIA
     Dosage: UNK
     Route: 065
     Dates: start: 2018
  18. VITAMIN D3 [Concomitant]
     Active Substance: CHOLECALCIFEROL
     Indication: VITAMIN D DEFICIENCY
     Dosage: UNK
     Route: 065
     Dates: start: 2016
  19. ISATUXIMAB [Suspect]
     Active Substance: ISATUXIMAB
     Dosage: 900 MG, QW
     Route: 042
     Dates: start: 20210323, end: 20210323
  20. POMALIDOMIDE. [Suspect]
     Active Substance: POMALIDOMIDE
     Indication: PLASMA CELL MYELOMA REFRACTORY
     Dosage: UNK
     Route: 065
     Dates: start: 20210518, end: 20210518
  21. POMALIDOMIDE. [Suspect]
     Active Substance: POMALIDOMIDE
     Dosage: UNK
     Route: 065
  22. BUPROPION HCL [Concomitant]
     Active Substance: BUPROPION HYDROCHLORIDE
     Indication: DEPRESSION
     Dosage: UNK
     Route: 065
     Dates: start: 20151020
  23. SYNTHROID [Concomitant]
     Active Substance: LEVOTHYROXINE SODIUM
     Indication: THYROID DISORDER
     Dosage: UNK
     Route: 065
     Dates: start: 2008
  24. AMLODIPINE BESYLATE. [Concomitant]
     Active Substance: AMLODIPINE BESYLATE
     Indication: HYPERTENSION
     Dosage: UNK
     Route: 065
     Dates: start: 1995
  25. PANTOPRAZOLE [Concomitant]
     Active Substance: PANTOPRAZOLE
     Indication: GASTRIC DISORDER
     Dosage: UNK
     Route: 065
     Dates: start: 2016
  26. ACETAMINOPHEN. [Concomitant]
     Active Substance: ACETAMINOPHEN
     Dosage: UNK
     Route: 065
     Dates: start: 20210410
  27. ISATUXIMAB [Suspect]
     Active Substance: ISATUXIMAB
     Indication: PLASMA CELL MYELOMA REFRACTORY
     Dosage: 900 MG, QW,
     Route: 042
     Dates: start: 20210518, end: 20210518
  28. DEXAMETHASONE. [Suspect]
     Active Substance: DEXAMETHASONE
     Indication: PLASMA CELL MYELOMA REFRACTORY
     Dosage: 40 MG, QOW
     Route: 065
     Dates: start: 20210518, end: 20210518
  29. DIPHENHYDRAMINE HYDROCHLORIDE. [Suspect]
     Active Substance: DIPHENHYDRAMINE HYDROCHLORIDE
     Dosage: UNK
     Route: 065
     Dates: start: 20210518

REACTIONS (1)
  - Urinary tract infection [Recovered/Resolved]

NARRATIVE: CASE EVENT DATE: 20210518
